FAERS Safety Report 5254911-8 (Version None)
Quarter: 2007Q1

REPORT INFORMATION
  Report Type: 
  Country: None (occurrence: None)
  Receive Date: 20070302
  Receipt Date: 20070302
  Transmission Date: 20070707
  Serious: Yes (Life-Threatening, Hospitalization, Disabling)
  Sender: FDA-Public Use
  Company Number: None

PATIENT
  Sex: Female
  Weight: 45.3597 kg

DRUGS (1)
  1. SINGULAIR [Suspect]
     Indication: ASTHMA
     Dosage: ONCE A DAY PO
     Route: 048
     Dates: start: 20060720, end: 20061010

REACTIONS (5)
  - DYSPEPSIA [None]
  - ERYTHEMA [None]
  - GASTRIC DISORDER [None]
  - HEPATIC CIRRHOSIS [None]
  - HEPATITIS CHRONIC ACTIVE [None]
